FAERS Safety Report 16237393 (Version 1)
Quarter: 2019Q2

REPORT INFORMATION
  Report Type: Spontaneous
  Country: GB (occurrence: GB)
  Receive Date: 20190425
  Receipt Date: 20190425
  Transmission Date: 20190711
  Serious: Yes (Hospitalization, Other)
  Sender: FDA-Public Use
  Company Number: GB-SA-2019SA111033

PATIENT
  Age: 51 Year
  Sex: Male

DRUGS (2)
  1. LEMTRADA [Suspect]
     Active Substance: ALEMTUZUMAB
     Dosage: 12MG/1.2ML
     Route: 042
  2. TECFIDERA [Suspect]
     Active Substance: DIMETHYL FUMARATE
     Dosage: 480 MG, QD
     Dates: start: 201510, end: 2018

REACTIONS (8)
  - Palmar erythema [Unknown]
  - Rash [Unknown]
  - Abnormal loss of weight [Unknown]
  - Chills [Unknown]
  - Malaise [Recovering/Resolving]
  - Liver function test abnormal [Unknown]
  - Acute kidney injury [Unknown]
  - Pyrexia [Unknown]

NARRATIVE: CASE EVENT DATE: 20190103
